FAERS Safety Report 9996403 (Version 2)
Quarter: 2014Q1

REPORT INFORMATION
  Report Type: Spontaneous
  Country: JP (occurrence: JP)
  Receive Date: 20140311
  Receipt Date: 20140320
  Transmission Date: 20141002
  Serious: No
  Sender: FDA-Public Use
  Company Number: JP-SA-2014SA027398

PATIENT
  Age: 62 Year
  Sex: Female

DRUGS (13)
  1. LASIX [Suspect]
     Indication: OEDEMA PERIPHERAL
     Route: 048
     Dates: start: 20131226, end: 20140111
  2. LASIX [Suspect]
     Indication: OEDEMA PERIPHERAL
     Route: 048
     Dates: start: 20131011, end: 20131109
  3. LASIX [Suspect]
     Indication: OEDEMA PERIPHERAL
     Route: 048
     Dates: start: 20131110, end: 20131219
  4. LASIX [Suspect]
     Indication: OEDEMA PERIPHERAL
     Route: 048
     Dates: start: 20131220, end: 20131225
  5. WARFARIN [Concomitant]
     Route: 048
     Dates: start: 20120807
  6. THYRADIN [Concomitant]
     Route: 048
     Dates: start: 20130807
  7. ALDACTONE [Concomitant]
     Route: 048
     Dates: start: 20131220
  8. DEPAKENE [Concomitant]
  9. ZYPREXA [Concomitant]
     Route: 048
     Dates: start: 20131016
  10. EURODIN [Concomitant]
     Route: 048
  11. LORAMET [Concomitant]
     Route: 048
     Dates: start: 20131218
  12. MAGNESIUM OXIDE [Concomitant]
     Route: 048
     Dates: start: 20130820
  13. HERBAL PREPARATION [Concomitant]
     Route: 048
     Dates: start: 20131024

REACTIONS (1)
  - Hyperuricaemia [Recovered/Resolved]
